FAERS Safety Report 7164200-2 (Version None)
Quarter: 2010Q4

REPORT INFORMATION
  Report Type: 
  Country: None (occurrence: None)
  Receive Date: 20101215
  Receipt Date: 20101207
  Transmission Date: 20110411
  Serious: Yes (Other)
  Sender: FDA-Public Use
  Company Number: FR-JNJFOC-20101203702

PATIENT
  Age: 44 Year
  Sex: Female

DRUGS (4)
  1. REMICADE [Suspect]
     Indication: SAPHO SYNDROME
     Route: 042
  2. REMICADE [Suspect]
     Dosage: 13TH INFUSION
     Route: 042
  3. CORTISONE [Concomitant]
     Indication: PREMEDICATION
  4. XYZAL [Concomitant]
     Indication: PREMEDICATION

REACTIONS (2)
  - ASTHMATIC CRISIS [None]
  - INFUSION RELATED REACTION [None]
